FAERS Safety Report 17190434 (Version 1)
Quarter: 2019Q4

REPORT INFORMATION
  Report Type: Spontaneous
  Country: AU (occurrence: AU)
  Receive Date: 20191223
  Receipt Date: 20191223
  Transmission Date: 20200122
  Serious: Yes (Other)
  Sender: FDA-Public Use
  Company Number: AU-ALKEM LABORATORIES LIMITED-AU-ALKEM-2019-07598

PATIENT
  Age: 52 Year
  Sex: Female

DRUGS (7)
  1. METHYLPREDNISOLONE. [Suspect]
     Active Substance: METHYLPREDNISOLONE
     Indication: TRANSPLANT REJECTION
     Dosage: UNK
     Route: 065
     Dates: start: 201705
  2. PREDNISOLONE. [Suspect]
     Active Substance: PREDNISOLONE
     Indication: IMMUNOSUPPRESSANT DRUG THERAPY
     Dosage: UNK
     Route: 065
     Dates: start: 201705
  3. ALLOPURINOL. [Concomitant]
     Active Substance: ALLOPURINOL
     Indication: ADENINE PHOSPHORIBOSYL TRANSFERASE DEFICIENCY
     Dosage: 300 MILLIGRAM, QD
     Route: 065
     Dates: start: 201706, end: 201805
  4. FEBOXUSTAT [Concomitant]
     Active Substance: FEBUXOSTAT
     Indication: ADENINE PHOSPHORIBOSYL TRANSFERASE DEFICIENCY
     Dosage: 40 MILLIGRAM, QD
     Route: 065
     Dates: start: 201805
  5. MYCOPHENOLATE MOFETIL. [Suspect]
     Active Substance: MYCOPHENOLATE MOFETIL
     Indication: IMMUNOSUPPRESSANT DRUG THERAPY
     Dosage: UNK
     Route: 065
     Dates: start: 201705
  6. TACROLIMUS. [Suspect]
     Active Substance: TACROLIMUS
     Indication: IMMUNOSUPPRESSANT DRUG THERAPY
     Dosage: UNK
     Route: 065
     Dates: start: 201705
  7. ALLOPURINOL. [Concomitant]
     Active Substance: ALLOPURINOL
     Dosage: 600 MILLIGRAM, QD
     Route: 065

REACTIONS (5)
  - Cytomegalovirus viraemia [Unknown]
  - Herpes zoster [Unknown]
  - Urinary tract infection [Unknown]
  - Transplant rejection [Recovered/Resolved]
  - Polyomavirus-associated nephropathy [Unknown]
